FAERS Safety Report 9152995 (Version 3)
Quarter: 2013Q2

REPORT INFORMATION
  Report Type: Report from Study
  Country: JP (occurrence: JP)
  Receive Date: 20130310
  Receipt Date: 20130424
  Transmission Date: 20140414
  Serious: Yes (Other)
  Sender: FDA-Public Use
  Company Number: JP-US-EMD SERONO, INC.-7196679

PATIENT
  Sex: Female
  Weight: 47 kg

DRUGS (5)
  1. GONAL-F RFF PEN [Suspect]
     Indication: OVULATION INDUCTION
     Dosage: FIRST CYCLE
     Route: 058
     Dates: start: 20101026, end: 20101104
  2. GONAL-F RFF PEN [Suspect]
     Dosage: FIRST CYCLE
     Route: 058
     Dates: start: 20101105, end: 20101107
  3. GONAL-F RFF PEN [Suspect]
     Dosage: SECOND CYCLE
     Route: 058
     Dates: start: 20101127, end: 20101206
  4. HCG [Concomitant]
     Indication: OVULATION INDUCTION
     Dosage: SECOND CYCLE
     Route: 030
     Dates: start: 20101207, end: 20101207
  5. LUTORAL [Concomitant]
     Indication: PRODUCT USED FOR UNKNOWN INDICATION
     Route: 048
     Dates: start: 20101108, end: 20101121

REACTIONS (1)
  - Foetal death [Recovered/Resolved]
